FAERS Safety Report 8110004-3 (Version None)
Quarter: 2012Q1

REPORT INFORMATION
  Report Type: 
  Country: None (occurrence: None)
  Receive Date: 20120202
  Receipt Date: 20120124
  Transmission Date: 20120608
  Serious: No
  Sender: FDA-Public Use
  Company Number: US-AMGEN-USASP2012004941

PATIENT
  Age: 56 Year
  Sex: Female

DRUGS (2)
  1. TREXALL [Concomitant]
     Dosage: 6 MG, UNK
     Dates: start: 20030101
  2. ENBREL [Suspect]
     Indication: RHEUMATOID ARTHRITIS
     Dosage: 50 MG, QWK
     Dates: start: 20111107, end: 20120109

REACTIONS (9)
  - TACHYCARDIA [None]
  - CHILLS [None]
  - ANAEMIA [None]
  - STAPHYLOCOCCAL INFECTION [None]
  - URINARY TRACT INFECTION [None]
  - FATIGUE [None]
  - ABDOMINAL DISCOMFORT [None]
  - PYREXIA [None]
  - ONYCHOMYCOSIS [None]
